FAERS Safety Report 25916912 (Version 1)
Quarter: 2025Q4

REPORT INFORMATION
  Report Type: Spontaneous
  Country: US (occurrence: US)
  Receive Date: 20251014
  Receipt Date: 20251014
  Transmission Date: 20260117
  Serious: No
  Sender: ROCHE
  Company Number: US-ROCHE-10000400690

PATIENT
  Sex: Female

DRUGS (8)
  1. ACTEMRA [Suspect]
     Active Substance: TOCILIZUMAB
     Indication: Giant cell arteritis
     Route: 058
  2. hydrochlorot tab 500 mg [Concomitant]
  3. GABAPENTIN [Concomitant]
     Active Substance: GABAPENTIN
  4. Amlodipine B tab 5 mg [Concomitant]
     Route: 048
  5. Pravastatin tab 80 mg [Concomitant]
     Route: 048
  6. Prednisolone SUS 1% [Concomitant]
     Route: 048
  7. Restasis EMU 0.05% [Concomitant]
     Route: 048
  8. Telmisartan tab 80 mg [Concomitant]
     Dosage: PEN MINI
     Route: 048

REACTIONS (2)
  - Injection site erythema [Not Recovered/Not Resolved]
  - Injection site rash [Not Recovered/Not Resolved]
